FAERS Safety Report 9988710 (Version 1)
Quarter: 2013Q4

REPORT INFORMATION
  Report Type: Spontaneous
  Country: US (occurrence: None)
  Receive Date: 20131015
  Receipt Date: 20131015
  Transmission Date: 20140711
  Serious: Yes (Hospitalization, Other)
  Sender: FDA-Public Use
  Company Number: 2012-003427

PATIENT
  Age: 61 Year
  Sex: Female
  Weight: 57.7 kg

DRUGS (6)
  1. ACTONEL (RISEDRONATE SODIUM) TABLET, 35 MG [Suspect]
     Indication: OSTEOPENIA
     Route: 048
     Dates: start: 2007, end: 2012
  2. ASPIRIN (ACETYLSALICYLIC ACID) [Concomitant]
  3. CYANOCOBALMIN (CYANOCOBALMIN) [Concomitant]
  4. GLUCOSAMINE (GLUCOSAMINE) [Concomitant]
  5. MULTIVITAMIN /01229101/VITAMIN NOS) [Concomitant]
  6. CALCIUM WITH VITAMIN D /00944201/CALCIUM CARBONATE, COLECALCIFEROL) [Concomitant]

REACTIONS (4)
  - Stress fracture [None]
  - Pain in extremity [None]
  - Osteoporosis [None]
  - Condition aggravated [None]
